FAERS Safety Report 23571762 (Version 2)
Quarter: 2024Q1

REPORT INFORMATION
  Report Type: Spontaneous
  Country: US (occurrence: US)
  Receive Date: 20240227
  Receipt Date: 20240313
  Transmission Date: 20240410
  Serious: No
  Sender: FDA-Public Use
  Company Number: US-AMGEN-USASP2024040070

PATIENT
  Age: 76 Year
  Sex: Female

DRUGS (1)
  1. REPATHA [Suspect]
     Active Substance: EVOLOCUMAB
     Indication: Blood cholesterol increased
     Dosage: STRENGTH: 140 MG
     Route: 065
     Dates: start: 2023

REACTIONS (2)
  - Device difficult to use [Unknown]
  - Asthenia [Unknown]

NARRATIVE: CASE EVENT DATE: 20240221
